FAERS Safety Report 6022336-3 (Version None)
Quarter: 2008Q4

REPORT INFORMATION
  Report Type: 
  Country: None (occurrence: None)
  Receive Date: 20081221
  Receipt Date: 20081221
  Transmission Date: 20090506
  Serious: Yes (Life-Threatening)
  Sender: FDA-Public Use
  Company Number: None

PATIENT
  Sex: Female
  Weight: 45.3597 kg

DRUGS (2)
  1. LAMICTAL [Suspect]
     Indication: ATTENTION DEFICIT/HYPERACTIVITY DISORDER
     Dosage: 100 2 TIMES A DAY
     Route: 048
     Dates: start: 20081031, end: 20081122
  2. LAMICTAL [Suspect]
     Indication: BIPOLAR DISORDER
     Dosage: 100 2 TIMES A DAY
     Route: 048
     Dates: start: 20081031, end: 20081122

REACTIONS (3)
  - ANOREXIA [None]
  - STEVENS-JOHNSON SYNDROME [None]
  - WEIGHT DECREASED [None]
